FAERS Safety Report 14518078 (Version 1)
Quarter: 2018Q1

REPORT INFORMATION
  Report Type: Spontaneous
  Country: US (occurrence: US)
  Receive Date: 20180209
  Receipt Date: 20180209
  Transmission Date: 20180509
  Serious: Yes (Other)
  Sender: FDA-Public Use
  Company Number: None

PATIENT
  Age: 61 Year
  Sex: Female

DRUGS (1)
  1. NUCALA [Suspect]
     Active Substance: MEPOLIZUMAB
     Indication: ASTHMA
     Dosage: FREQUENCY - Q4WEEKS
     Route: 058
     Dates: start: 20170206, end: 20170206

REACTIONS (8)
  - Vomiting [None]
  - Pneumonitis [None]
  - Abdominal pain [None]
  - Myalgia [None]
  - Diarrhoea [None]
  - Chills [None]
  - Arthralgia [None]
  - Pyrexia [None]

NARRATIVE: CASE EVENT DATE: 20180206
